FAERS Safety Report 5085033-7 (Version None)
Quarter: 2006Q3

REPORT INFORMATION
  Report Type: 
  Country: None (occurrence: None)
  Receive Date: 20060815
  Receipt Date: 20060802
  Transmission Date: 20061208
  Serious: Yes (Hospitalization)
  Sender: FDA-Public Use
  Company Number: US200608000516

PATIENT
  Age: 24 Year
  Sex: Female
  Weight: 107.9 kg

DRUGS (1)
  1. ILETIN [Suspect]
     Indication: DIABETES MELLITUS
     Dates: start: 19770101

REACTIONS (7)
  - BLOOD GLUCOSE FLUCTUATION [None]
  - DRUG EXPOSURE DURING PREGNANCY [None]
  - LABOUR INDUCTION [None]
  - PHARMACEUTICAL PRODUCT COMPLAINT [None]
  - PREGNANCY [None]
  - UTERINE CONTRACTIONS DURING PREGNANCY [None]
  - UTERINE INFECTION [None]
